FAERS Safety Report 22853954 (Version 4)
Quarter: 2023Q4

REPORT INFORMATION
  Report Type: Spontaneous
  Country: US (occurrence: US)
  Receive Date: 20230823
  Receipt Date: 20231009
  Transmission Date: 20240110
  Serious: Yes (Hospitalization, Disabling, Other)
  Sender: FDA-Public Use
  Company Number: US-INTRA-CELLULAR THERAPIES, INC.-2023ICT01152

PATIENT
  Age: 28 Year
  Sex: Female
  Weight: 113.38 kg

DRUGS (2)
  1. CAPLYTA [Suspect]
     Active Substance: LUMATEPERONE
     Indication: Bipolar I disorder
     Dosage: 42 MG (1 CAPSULE), 1X/DAY
     Route: 048
     Dates: start: 20230803, end: 20230806
  2. CAPLYTA [Suspect]
     Active Substance: LUMATEPERONE
     Dosage: REDUCED
     Route: 048
     Dates: start: 20230807, end: 20230808

REACTIONS (6)
  - Deafness unilateral [Not Recovered/Not Resolved]
  - Deafness neurosensory [Not Recovered/Not Resolved]
  - Ototoxicity [Not Recovered/Not Resolved]
  - Ear pain [Unknown]
  - Balance disorder [Unknown]
  - Dizziness [Unknown]

NARRATIVE: CASE EVENT DATE: 20230808
